FAERS Safety Report 10480824 (Version 2)
Quarter: 2014Q4

REPORT INFORMATION
  Report Type: Spontaneous
  Country: JP (occurrence: None)
  Receive Date: 20140925
  Receipt Date: 20141006
  Transmission Date: 20150528
  Serious: Yes (Other)
  Sender: FDA-Public Use
  Company Number: JP-RRD-14-00111

PATIENT
  Sex: Male

DRUGS (1)
  1. COSMEGEN [Suspect]
     Active Substance: DACTINOMYCIN
     Indication: PRODUCT USED FOR UNKNOWN INDICATION
     Dosage: (NOT OTHERWISE SPECIFIED)
     Route: 042

REACTIONS (1)
  - Nephrolithiasis [None]
